FAERS Safety Report 5932011-9 (Version None)
Quarter: 2008Q4

REPORT INFORMATION
  Report Type: 
  Country: None (occurrence: None)
  Receive Date: 20081027
  Receipt Date: 20081024
  Transmission Date: 20090506
  Serious: Yes (Life-Threatening)
  Sender: FDA-Public Use
  Company Number: AU-B.I. PHARMACEUTICALS,INC./RIDGEFIELD-2008-BP-16195AU

PATIENT
  Sex: Male

DRUGS (3)
  1. MOBIC [Suspect]
     Dates: start: 20070601, end: 20080709
  2. ASPIRIN [Suspect]
     Dates: start: 20050101
  3. PREDNISOLONE [Suspect]

REACTIONS (2)
  - PERFORATED ULCER [None]
  - PERITONITIS [None]
